FAERS Safety Report 19372767 (Version 1)
Quarter: 2021Q2

REPORT INFORMATION
  Report Type: Other
  Country: PL (occurrence: PL)
  Receive Date: 20210604
  Receipt Date: 20210604
  Transmission Date: 20210717
  Serious: Yes (Other)
  Sender: FDA-Public Use
  Company Number: PL-ROCHE-2705032

PATIENT
  Age: 72 Year
  Sex: Female

DRUGS (12)
  1. PERTUZUMAB. [Suspect]
     Active Substance: PERTUZUMAB
     Indication: INVASIVE LOBULAR BREAST CARCINOMA
  2. HERCEPTIN [Suspect]
     Active Substance: TRASTUZUMAB
     Indication: INVASIVE LOBULAR BREAST CARCINOMA
  3. PERTUZUMAB. [Suspect]
     Active Substance: PERTUZUMAB
     Indication: BREAST CANCER METASTATIC
  4. PERTUZUMAB. [Suspect]
     Active Substance: PERTUZUMAB
     Indication: INTESTINAL METASTASIS
  5. HERCEPTIN [Suspect]
     Active Substance: TRASTUZUMAB
     Indication: BREAST CANCER METASTATIC
  6. DOCETAXEL. [Suspect]
     Active Substance: DOCETAXEL
     Indication: INTESTINAL METASTASIS
  7. HERCEPTIN [Suspect]
     Active Substance: TRASTUZUMAB
     Indication: INTESTINAL METASTASIS
     Route: 065
  8. DOCETAXEL. [Suspect]
     Active Substance: DOCETAXEL
     Indication: INTESTINAL METASTASIS
     Route: 065
  9. DOCETAXEL. [Suspect]
     Active Substance: DOCETAXEL
     Indication: BREAST CANCER METASTATIC
  10. HERCEPTIN [Suspect]
     Active Substance: TRASTUZUMAB
     Indication: INTESTINAL METASTASIS
  11. PERTUZUMAB. [Suspect]
     Active Substance: PERTUZUMAB
     Indication: INTESTINAL METASTASIS
     Route: 065
  12. DOCETAXEL. [Suspect]
     Active Substance: DOCETAXEL
     Indication: INVASIVE LOBULAR BREAST CARCINOMA

REACTIONS (5)
  - Condition aggravated [Recovered/Resolved]
  - Polyneuropathy [Recovered/Resolved]
  - Intestinal metastasis [Recovered/Resolved]
  - Off label use [Unknown]
  - Colon neoplasm [Recovered/Resolved]
